FAERS Safety Report 18730352 (Version 1)
Quarter: 2021Q1

REPORT INFORMATION
  Report Type: Spontaneous
  Country: US (occurrence: US)
  Receive Date: 20210112
  Receipt Date: 20210112
  Transmission Date: 20210419
  Serious: Yes (Other)
  Sender: FDA-Public Use
  Company Number: US-INTRA-CELLULAR THERAPIES, INC.-2020ICT00209

PATIENT
  Age: 44 Year
  Sex: Female
  Weight: 60.5 kg

DRUGS (3)
  1. CAPLYTA [Suspect]
     Active Substance: LUMATEPERONE
     Indication: SCHIZOPHRENIA
     Dosage: 42 MG, 1X/DAY
     Route: 048
     Dates: start: 20200925, end: 20200930
  2. DULOXETINE. [Concomitant]
     Active Substance: DULOXETINE
     Dosage: 60 MG, 1X/DAY AT BEDTIME
  3. BUPROPION XL [Concomitant]
     Active Substance: BUPROPION
     Dosage: 300 MG, 1X/DAY AT BEDTIME

REACTIONS (1)
  - Dystonia [Recovered/Resolved]

NARRATIVE: CASE EVENT DATE: 20200927
